FAERS Safety Report 6503567-2 (Version None)
Quarter: 2009Q4

REPORT INFORMATION
  Report Type: 
  Country: None (occurrence: None)
  Receive Date: 20091217
  Receipt Date: 20091208
  Transmission Date: 20100525
  Serious: Yes (Other)
  Sender: FDA-Public Use
  Company Number: JP-PFIZER INC-2009302100

PATIENT
  Age: 76 Year
  Sex: Male

DRUGS (8)
  1. LIPITOR [Suspect]
     Indication: LIPIDS ABNORMAL
     Dosage: 5 MG, 1X/DAY
     Route: 048
     Dates: start: 20081212, end: 20090315
  2. PRAVASTATIN [Suspect]
     Indication: LIPIDS ABNORMAL
     Dosage: 1 DF, 1X/DAY
     Route: 048
     Dates: start: 20060908, end: 20081128
  3. NORVASC [Concomitant]
     Indication: HYPERTENSION
     Dosage: UNK
     Route: 048
  4. TENORMIN [Concomitant]
     Indication: HYPERTENSION
     Dosage: UNK
     Route: 048
  5. LOSARTAN POTASSIUM AND HYDROCHLOROTHIAZIDE [Concomitant]
     Indication: HYPERTENSION
     Dosage: UNK
     Route: 048
  6. DIGESTIVES, INCL ENZYMES [Concomitant]
     Indication: GASTRITIS
     Dosage: UNK
     Route: 048
  7. DIAZEPAM [Concomitant]
     Indication: ANXIETY DISORDER
     Dosage: UNK
     Route: 048
  8. CISDYNE [Concomitant]
     Dosage: UNK
     Route: 048

REACTIONS (8)
  - ALANINE AMINOTRANSFERASE INCREASED [None]
  - ARTHRALGIA [None]
  - ASPARTATE AMINOTRANSFERASE INCREASED [None]
  - BLOOD CREATINE PHOSPHOKINASE INCREASED [None]
  - BLOOD LACTATE DEHYDROGENASE INCREASED [None]
  - CHONDROCALCINOSIS PYROPHOSPHATE [None]
  - PYREXIA [None]
  - RHABDOMYOLYSIS [None]
